FAERS Safety Report 4335467-0 (Version None)
Quarter: 2004Q1

REPORT INFORMATION
  Report Type: 
  Country: None (occurrence: None)
  Receive Date: 20040330
  Receipt Date: 20031210
  Transmission Date: 20041129
  Serious: No
  Sender: FDA-Public Use
  Company Number: 27381

PATIENT
  Sex: Female

DRUGS (1)
  1. TRAVATAN [Suspect]
     Dates: start: 20031209

REACTIONS (4)
  - CARDIAC FLUTTER [None]
  - EYE PAIN [None]
  - NAUSEA [None]
  - OCULAR HYPERAEMIA [None]
